FAERS Safety Report 5611924-1 (Version None)
Quarter: 2008Q1

REPORT INFORMATION
  Report Type: 
  Country: None (occurrence: None)
  Receive Date: 20080131
  Receipt Date: 20080131
  Transmission Date: 20080703
  Serious: No
  Sender: FDA-Public Use
  Company Number: None

PATIENT
  Sex: Female
  Weight: 94 kg

DRUGS (3)
  1. TAXOL [Suspect]
     Dosage: 360 MG
  2. ASPIRIN [Concomitant]
  3. LISINOPRIL [Concomitant]

REACTIONS (2)
  - HERPES ZOSTER [None]
  - PAIN [None]
